FAERS Safety Report 8131081-X (Version None)
Quarter: 2012Q1

REPORT INFORMATION
  Report Type: 
  Country: None (occurrence: None)
  Receive Date: 20120209
  Receipt Date: 20120209
  Transmission Date: 20120608
  Serious: Yes (Other)
  Sender: FDA-Public Use
  Company Number: None

PATIENT
  Age: 45 Year
  Sex: Female
  Weight: 58.9676 kg

DRUGS (3)
  1. ACTEMRA [Suspect]
     Indication: ARTHRITIS
     Dosage: 480MG MONTHLY IV
     Route: 042
     Dates: start: 20111020
  2. ACTEMRA [Suspect]
     Indication: ARTHRITIS
     Dosage: 480MG MONTHLY IV
     Route: 042
     Dates: start: 20111115
  3. ACTEMRA [Suspect]
     Indication: ARTHRITIS
     Dosage: 480MG MONTHLY IV
     Route: 042
     Dates: start: 20111212

REACTIONS (1)
  - ANXIETY [None]
